FAERS Safety Report 20712947 (Version 1)
Quarter: 2022Q2

REPORT INFORMATION
  Report Type: Spontaneous
  Country: FR (occurrence: FR)
  Receive Date: 20220415
  Receipt Date: 20220415
  Transmission Date: 20220721
  Serious: Yes (Hospitalization)
  Sender: FDA-Public Use
  Company Number: None

PATIENT
  Age: 67 Year
  Sex: Male
  Weight: 76 kg

DRUGS (13)
  1. FLUDARABINE PHOSPHATE [Suspect]
     Active Substance: FLUDARABINE PHOSPHATE
     Indication: Bone marrow conditioning regimen
     Dosage: UNIT DOSE : 54 MG, FREQUENCY TIME :1 TOTAL, DURATION : 2 DAYS
     Route: 042
     Dates: start: 20220117, end: 20220119
  2. METHOTREXATE [Suspect]
     Active Substance: METHOTREXATE
     Indication: Prophylaxis against transplant rejection
     Dosage: UNIT DOSE : 45 MG, FREQUENCY TIME :1 TOTAL, DURATION : 3 DAY
     Route: 042
     Dates: start: 20220121, end: 20220124
  3. ISOSORBIDE [Suspect]
     Active Substance: ISOSORBIDE
     Indication: Acute pulmonary oedema
     Dosage: UNIT DOSE : 6 MG, FREQUENCY TIME :1 HOUR, DURATION : 1 DAY
     Route: 042
     Dates: start: 20220124, end: 20220125
  4. MELPHALAN [Suspect]
     Active Substance: MELPHALAN
     Indication: Bone marrow conditioning regimen
     Dosage: UNIT DOSE : 250 MG, FREQUENCY TIME :1 TOTAL, DURATION : 1 DAY
     Route: 042
     Dates: start: 20220117, end: 20220117
  5. THYMOGLOBULINE [Suspect]
     Active Substance: LAPINE T-LYMPHOCYTE IMMUNE GLOBULIN
     Indication: Prophylaxis against transplant rejection
     Dosage: STRENGTH : 5 MG/ML, DURATION :2 DAYS
     Route: 042
     Dates: start: 20220118, end: 20220120
  6. CYCLOSPORINE [Suspect]
     Active Substance: CYCLOSPORINE
     Indication: Prophylaxis against transplant rejection
     Dosage: UNIT DOSE : 120 MG, FREQUENCY TIME :1 DAY
     Route: 042
     Dates: start: 20220120
  7. PIPERACILLIN SODIUM\TAZOBACTAM SODIUM [Concomitant]
     Active Substance: PIPERACILLIN SODIUM\TAZOBACTAM SODIUM
     Dosage: UNIT DOSE : 12 GRAM, FREQUENCY TIME :1 DAY, DURATION : 2 DAY
     Route: 042
     Dates: start: 20220122, end: 20220124
  8. SOLU-MEDROL [Concomitant]
     Active Substance: METHYLPREDNISOLONE SODIUM SUCCINATE
     Dosage: SOLUMEDROL 120 MG/2 ML, LYOPHILISATE AND SOLUTION FOR PARENTERAL USE, UNIT DOSE : 120 MG, FREQUENCY
     Route: 042
     Dates: start: 20220118, end: 20220121
  9. FUROSEMIDE [Concomitant]
     Active Substance: FUROSEMIDE
     Route: 042
     Dates: start: 20220122
  10. CEFTRIAXONE [Concomitant]
     Active Substance: CEFTRIAXONE
     Dosage: CEFTRIAXONE BASE, UNIT DOSE : 2 GRAM, FREQUENCY TIME :1 DAY , DURATION : 1 DAY
     Route: 042
     Dates: start: 20220121, end: 20220122
  11. CEFAZOLIN SODIUM [Concomitant]
     Active Substance: CEFAZOLIN SODIUM
     Dosage: DURATION : 6 DAYS
     Route: 042
     Dates: start: 20220124, end: 20220130
  12. CIPROFLOXACIN [Concomitant]
     Active Substance: CIPROFLOXACIN
     Route: 042
     Dates: start: 20220124
  13. AMIKACIN [Concomitant]
     Active Substance: AMIKACIN
     Dosage: UNIT DOSE :  1.5 G, FREQUENCY TIME :1 TOTAL, DURATION : 1 DAY
     Route: 042
     Dates: start: 20220121, end: 20220121

REACTIONS (1)
  - Hepatic cytolysis [Recovered/Resolved]

NARRATIVE: CASE EVENT DATE: 20220126
